FAERS Safety Report 17120130 (Version 1)
Quarter: 2019Q4

REPORT INFORMATION
  Report Type: Spontaneous
  Country: DE (occurrence: DE)
  Receive Date: 20191206
  Receipt Date: 20191206
  Transmission Date: 20200122
  Serious: Yes (Other)
  Sender: FDA-Public Use
  Company Number: DE-TORRENT-00016094

PATIENT
  Age: 1 Day
  Sex: Female
  Weight: 2 kg

DRUGS (2)
  1. QUETIAPIN [Suspect]
     Active Substance: QUETIAPINE
     Indication: BIPOLAR DISORDER
     Dosage: 200 [MG/D ]
     Route: 064
     Dates: start: 20180205, end: 20181028
  2. SERTRALINE [Suspect]
     Active Substance: SERTRALINE HYDROCHLORIDE
     Indication: DEPRESSION
     Dosage: 150 [MG/D (BIS 75) ]
     Route: 064
     Dates: start: 20180205, end: 20181028

REACTIONS (2)
  - Foetal exposure during pregnancy [Unknown]
  - Apnoea [Unknown]

NARRATIVE: CASE EVENT DATE: 20181028
